FAERS Safety Report 22000564 (Version 4)
Quarter: 2024Q1

REPORT INFORMATION
  Report Type: Spontaneous
  Country: US (occurrence: US)
  Receive Date: 20230216
  Receipt Date: 20240328
  Transmission Date: 20240409
  Serious: No
  Sender: FDA-Public Use
  Company Number: US-SA-SAC20230215000589

PATIENT
  Age: 31 Year
  Sex: Female
  Weight: 71 kg

DRUGS (1)
  1. DUPIXENT [Suspect]
     Active Substance: DUPILUMAB
     Indication: Nasal polyps
     Dosage: 300 MG, QOW
     Route: 058
     Dates: start: 20221010

REACTIONS (8)
  - Menstruation delayed [Unknown]
  - Allergy to chemicals [Unknown]
  - Flushing [Unknown]
  - Weight increased [Unknown]
  - Eye discharge [Unknown]
  - Ocular hyperaemia [Unknown]
  - Conjunctivitis [Unknown]
  - Dry eye [Unknown]
